FAERS Safety Report 5648199-3 (Version None)
Quarter: 2008Q1

REPORT INFORMATION
  Report Type: 
  Country: None (occurrence: None)
  Receive Date: 20080229
  Receipt Date: 20080215
  Transmission Date: 20080703
  Serious: Yes (Hospitalization)
  Sender: FDA-Public Use
  Company Number: 230041M08USA

PATIENT
  Age: 38 Year
  Sex: Male

DRUGS (8)
  1. REBIF [Suspect]
     Indication: MULTIPLE SCLEROSIS
     Dosage: NOT REPORTED, 3 IN 1 WEEKS, SUBCUTANEOUS
     Route: 058
  2. AMANTADINE HCL [Concomitant]
  3. ZOLOFT [Concomitant]
  4. GABAPENTIN [Concomitant]
  5. BACLOFEN [Concomitant]
  6. SEROQUEL [Concomitant]
  7. NORVASC [Concomitant]
  8. STEROIDS(CORTICOSTEROID NOS) [Concomitant]

REACTIONS (17)
  - ABDOMINAL PAIN [None]
  - AGITATION [None]
  - ALANINE AMINOTRANSFERASE INCREASED [None]
  - BLOOD ALCOHOL ABNORMAL [None]
  - BLOOD POTASSIUM DECREASED [None]
  - BLOOD PRESSURE INCREASED [None]
  - DEPRESSED MOOD [None]
  - DEPRESSION [None]
  - DIARRHOEA [None]
  - ELECTROCARDIOGRAM [None]
  - ELECTROCARDIOGRAM ST-T CHANGE [None]
  - HEART RATE INCREASED [None]
  - MULTIPLE DRUG OVERDOSE [None]
  - SOMNOLENCE [None]
  - SUICIDE ATTEMPT [None]
  - VOMITING [None]
  - WHITE BLOOD CELL COUNT INCREASED [None]
